FAERS Safety Report 4349264-3 (Version None)
Quarter: 2004Q2

REPORT INFORMATION
  Report Type: 
  Country: None (occurrence: None)
  Receive Date: 20040427
  Receipt Date: 20030313
  Transmission Date: 20050107
  Serious: No
  Sender: FDA-Public Use
  Company Number: 000489

PATIENT
  Age: 43 Year
  Sex: Male
  Weight: 74.8 kg

DRUGS (4)
  1. ZEVALIN [Suspect]
     Indication: NON-HODGKIN'S LYMPHOMA
     Dosage: SINGLE, RITUXAN DOSE 1, INTRAVENOUS
     Route: 042
     Dates: start: 20030311, end: 20030311
  2. ZEVALIN [Suspect]
     Dosage: 5.5 MCI, SINGLE, IN 11 ZEVALIN, INTRAVENOUS
     Route: 042
     Dates: start: 20030311, end: 20030311
  3. ZEVALIN [Suspect]
     Dosage: SINGLE, RITUXAN DOSE 2, INTRAVENOUS; 21.9 MCI, SINGLE, Y-[90] ZEVALIN, INTRAVENOUS
     Route: 042
     Dates: start: 20030318, end: 20030318
  4. ZEVALIN [Suspect]
     Dosage: SINGLE, RITUXAN DOSE 2, INTRAVENOUS; 21.9 MCI, SINGLE, Y-[90] ZEVALIN, INTRAVENOUS
     Route: 042
     Dates: start: 20030318, end: 20030318

REACTIONS (1)
  - THROMBOCYTOPENIA [None]
